FAERS Safety Report 5600140-5 (Version None)
Quarter: 2008Q1

REPORT INFORMATION
  Report Type: 
  Country: None (occurrence: None)
  Receive Date: 20080123
  Receipt Date: 20080121
  Transmission Date: 20080703
  Serious: Yes (Death)
  Sender: FDA-Public Use
  Company Number: B0504668A

PATIENT
  Age: 78 Year
  Sex: Male
  Weight: 62 kg

DRUGS (12)
  1. ARIXTRA [Suspect]
     Dosage: 1.5MG PER DAY
     Route: 058
     Dates: start: 20071129
  2. DIOSMINE [Concomitant]
  3. CORDARONE [Concomitant]
  4. AMLOR [Concomitant]
  5. TANAKAN [Concomitant]
  6. SERESTA [Concomitant]
  7. DAFALGAN [Concomitant]
  8. CONTRAMAL [Concomitant]
  9. FORLAX [Concomitant]
  10. NOROXIN [Concomitant]
  11. PREVISCAN [Concomitant]
     Dates: end: 20071127
  12. ATARAX [Concomitant]

REACTIONS (1)
  - PULMONARY EMBOLISM [None]
